FAERS Safety Report 18145820 (Version 37)
Quarter: 2023Q1

REPORT INFORMATION
  Report Type: Report from Study
  Country: GB (occurrence: GB)
  Receive Date: 20200813
  Receipt Date: 20230305
  Transmission Date: 20230417
  Serious: Yes (Hospitalization, Other)
  Sender: FDA-Public Use
  Company Number: None

PATIENT
  Age: 55 Year
  Sex: Female
  Weight: 63.5 kg

DRUGS (54)
  1. CARBOPLATIN [Suspect]
     Active Substance: CARBOPLATIN
     Indication: Non-small cell lung cancer
     Route: 065
  2. ETOPOSIDE [Suspect]
     Active Substance: ETOPOSIDE
     Indication: Non-small cell lung cancer metastatic
     Route: 065
  3. FILGRASTIM [Suspect]
     Active Substance: FILGRASTIM
     Indication: White blood cell count decreased
     Route: 065
     Dates: start: 20200512, end: 20200515
  4. PACLITAXEL [Suspect]
     Active Substance: PACLITAXEL
     Indication: Non-small cell lung cancer
     Route: 065
     Dates: start: 20200325, end: 20200325
  5. ATEZOLIZUMAB [Suspect]
     Active Substance: ATEZOLIZUMAB
     Indication: Neoplasm malignant
     Dosage: 1200 MILLIGRAM, Q3WK, IV DRIP
     Route: 042
     Dates: start: 20200212, end: 20200415
  6. BEVACIZUMAB [Suspect]
     Active Substance: BEVACIZUMAB
     Indication: Non-small cell lung cancer
     Dosage: UNK, IV DRIP
     Route: 042
  7. FAMOTIDINE [Suspect]
     Active Substance: FAMOTIDINE
     Indication: Non-small cell lung cancer metastatic
     Dosage: MOST RECENT DOSE PRIOR TO AE 12/FEB/2020
     Route: 065
     Dates: start: 20200212, end: 20200212
  8. DENOSUMAB [Suspect]
     Active Substance: DENOSUMAB
     Indication: Bone pain
     Dates: start: 20200803
  9. FAMOTIDINE [Concomitant]
     Active Substance: FAMOTIDINE
     Dosage: 40 MILLIGRAM, ALSO RECEIVED TABLET
     Dates: start: 20200212, end: 20200212
  10. CHLORPHENIRAMINE MALEATE [Concomitant]
     Active Substance: CHLORPHENIRAMINE MALEATE
     Dosage: 10 MILLIGRAM
     Dates: start: 20200325, end: 20200325
  11. LOPERAMIDE [Concomitant]
     Active Substance: LOPERAMIDE
     Indication: Diarrhoea
     Dosage: UNK
     Dates: start: 20200601
  12. ONDANSETRON [Concomitant]
     Active Substance: ONDANSETRON
     Dosage: 8 MILLIGRAM
     Dates: start: 20200212, end: 20200212
  13. DEXAMETHASONE [Concomitant]
     Active Substance: DEXAMETHASONE
     Indication: Nausea
     Dosage: 20 MILLIGRAM
     Dates: start: 20200304, end: 20200304
  14. RANITIDINE [Concomitant]
     Active Substance: RANITIDINE
     Dosage: 50 MILLIGRAM
     Dates: start: 20200325, end: 20200325
  15. DENOSUMAB [Concomitant]
     Active Substance: DENOSUMAB
     Indication: Bone pain
     Dates: start: 20200803
  16. CYCLIZINE [Concomitant]
     Active Substance: CYCLIZINE
     Indication: Nausea
     Dates: start: 20200811
  17. PREDNISOLONE [Concomitant]
     Active Substance: PREDNISOLONE
     Dates: start: 20200926, end: 20201005
  18. MORPHINE [Concomitant]
     Active Substance: MORPHINE
     Indication: Pain in extremity
     Dates: start: 20200829
  19. METOCLOPRAMIDE [Concomitant]
     Active Substance: METOCLOPRAMIDE
     Indication: Vomiting
     Route: 030
     Dates: start: 20200511, end: 20200511
  20. CYCLIZINE [Concomitant]
     Active Substance: CYCLIZINE
     Indication: Nausea
     Dates: start: 20190824
  21. CYCLIZINE [Concomitant]
     Active Substance: CYCLIZINE
     Indication: Nausea
     Dates: start: 20190624
  22. CYCLIZINE [Concomitant]
     Active Substance: CYCLIZINE
     Indication: Nausea
     Dates: start: 20190524
  23. BEVACIZUMAB [Suspect]
     Active Substance: BEVACIZUMAB
     Indication: Neoplasm malignant
     Dosage: UNK
     Route: 042
  24. PACLITAXEL [Suspect]
     Active Substance: PACLITAXEL
     Indication: Non-small cell lung cancer
     Route: 042
     Dates: start: 20200325, end: 20200325
  25. CHLORPHENIRAMINE MALEATE [Concomitant]
     Active Substance: CHLORPHENIRAMINE MALEATE
     Dosage: 10 MILLIGRAM
     Dates: start: 20200304, end: 20200325
  26. FAMOTIDINE [Concomitant]
     Active Substance: FAMOTIDINE
     Dosage: 40 MILLIGRAM
     Route: 065
     Dates: start: 20200212, end: 20200212
  27. CHLORPHENIRAMINE MALEATE [Concomitant]
     Active Substance: CHLORPHENIRAMINE MALEATE
     Dates: start: 20200204
  28. PREDNISOLONE [Concomitant]
     Active Substance: PREDNISOLONE
     Dates: start: 20200204
  29. DEXAMETHASONE [Concomitant]
     Active Substance: DEXAMETHASONE
     Indication: Nausea
     Dosage: 20 MILLIGRAM
     Dates: start: 20200212, end: 20200325
  30. PREDNISOLONE [Concomitant]
     Active Substance: PREDNISOLONE
     Dates: start: 20200921, end: 20201005
  31. RANITIDINE [Concomitant]
     Active Substance: RANITIDINE
     Indication: Product used for unknown indication
     Dates: start: 20200304, end: 20200325
  32. ATEZOLIZUMAB [Suspect]
     Active Substance: ATEZOLIZUMAB
     Indication: Neoplasm malignant
     Dosage: 1200 MG, TIW
     Route: 042
     Dates: start: 20200204
  33. BEVACIZUMAB [Suspect]
     Active Substance: BEVACIZUMAB
     Indication: Non-small cell lung cancer
     Dosage: UNK, IV DRIP
     Route: 042
     Dates: start: 20220204
  34. ATEZOLIZUMAB [Suspect]
     Active Substance: ATEZOLIZUMAB
     Indication: Neoplasm malignant
     Dosage: 1200 MILLIGRAM, Q3WK IV DRIP
     Route: 042
     Dates: start: 20200624
  35. CHLORPHENIRAMINE MALEATE [Concomitant]
     Active Substance: CHLORPHENIRAMINE MALEATE
     Dosage: 10 MILLIGRAM
     Dates: start: 20200304, end: 20200304
  36. RANITIDINE [Concomitant]
     Active Substance: RANITIDINE
     Dosage: 50 MILLIGRAM
     Dates: start: 20200304, end: 20200304
  37. DEXAMETHASONE [Concomitant]
     Active Substance: DEXAMETHASONE
     Indication: Nausea
     Dosage: 20 MILLIGRAM
     Dates: start: 20200325, end: 20200325
  38. ATEZOLIZUMAB [Suspect]
     Active Substance: ATEZOLIZUMAB
     Indication: Neoplasm malignant
     Dosage: 1200 MILLIGRAM, Q3WK IV DRIP
     Route: 042
     Dates: start: 20200805
  39. ATEZOLIZUMAB [Suspect]
     Active Substance: ATEZOLIZUMAB
     Indication: Neoplasm malignant
     Dosage: 1200 MILLIGRAM, Q3WK IV DRIP
     Route: 042
     Dates: start: 20200916
  40. ATEZOLIZUMAB [Suspect]
     Active Substance: ATEZOLIZUMAB
     Indication: Neoplasm malignant
     Dosage: 1200 MILLIGRAM, Q3WK IV DRIP
     Route: 042
     Dates: start: 20200826
  41. PREDNISOLONE [Concomitant]
     Active Substance: PREDNISOLONE
     Indication: Hepatic failure
     Dates: start: 20200921, end: 20200925
  42. DEXAMETHASONE [Concomitant]
     Active Substance: DEXAMETHASONE
     Indication: Nausea
     Dates: start: 20200504, end: 20200504
  43. ATEZOLIZUMAB [Suspect]
     Active Substance: ATEZOLIZUMAB
     Indication: Neoplasm malignant
     Dosage: IV DRIP
     Route: 042
     Dates: start: 20200715
  44. ATEZOLIZUMAB [Suspect]
     Active Substance: ATEZOLIZUMAB
     Indication: Neoplasm malignant
     Dosage: IV DRIP
     Route: 042
     Dates: start: 20200312
  45. PREDNISOLONE [Concomitant]
     Active Substance: PREDNISOLONE
     Indication: Hepatic failure
     Dates: start: 20200325, end: 20200325
  46. ATEZOLIZUMAB [Suspect]
     Active Substance: ATEZOLIZUMAB
     Indication: Neoplasm malignant
     Dosage: 1200 MILLIGRAM, Q3WK IV DRIP
     Route: 042
     Dates: start: 20200805
  47. FILGRASTIM [Suspect]
     Active Substance: FILGRASTIM
     Indication: Non-small cell lung cancer metastatic
     Route: 065
     Dates: start: 20200513, end: 20200515
  48. DEXAMETHASONE [Concomitant]
     Active Substance: DEXAMETHASONE
     Indication: Nausea
     Dosage: 20 MILLIGRAM, STOP 12-FEB-2020
     Dates: start: 20200212, end: 20200212
  49. ATEZOLIZUMAB [Suspect]
     Active Substance: ATEZOLIZUMAB
     Indication: Neoplasm malignant
     Dosage: 1200 MILLIGRAM, Q3WK, IV DRIP
     Route: 042
     Dates: start: 20200325
  50. ATEZOLIZUMAB [Suspect]
     Active Substance: ATEZOLIZUMAB
     Indication: Neoplasm malignant
     Dosage: 1200 MILLIGRAM, Q3WK
     Route: 042
     Dates: start: 20200204, end: 20200715
  51. ATEZOLIZUMAB [Suspect]
     Active Substance: ATEZOLIZUMAB
     Indication: Neoplasm malignant
     Dosage: 1200 MILLIGRAM, Q3WK IV DRIP
     Route: 042
     Dates: start: 20200304
  52. ATEZOLIZUMAB [Suspect]
     Active Substance: ATEZOLIZUMAB
     Indication: Neoplasm malignant
     Dosage: 1200 MILLIGRAM, Q3WK IV DRIP
     Route: 042
     Dates: start: 20200415
  53. ATEZOLIZUMAB [Suspect]
     Active Substance: ATEZOLIZUMAB
     Indication: Neoplasm malignant
     Dosage: 1200 MILLIGRAM, Q3WK IV DRIP
     Route: 042
     Dates: start: 20200513, end: 20200715
  54. ATEZOLIZUMAB [Suspect]
     Active Substance: ATEZOLIZUMAB
     Indication: Neoplasm malignant
     Dosage: 1200 MILLIGRAM, Q3WK IV DRIP
     Route: 042
     Dates: start: 20200603

REACTIONS (22)
  - Neuropathy peripheral [Unknown]
  - Nausea [Not Recovered/Not Resolved]
  - Anaemia [Recovered/Resolved]
  - Fatigue [Not Recovered/Not Resolved]
  - Ear pain [Not Recovered/Not Resolved]
  - Mucosal inflammation [Not Recovered/Not Resolved]
  - Intentional product use issue [Unknown]
  - Blood magnesium decreased [Recovering/Resolving]
  - Autoimmune haemolytic anaemia [Recovering/Resolving]
  - Vomiting [Recovering/Resolving]
  - Weight decreased [Recovered/Resolved]
  - Haemoglobin decreased [Not Recovered/Not Resolved]
  - White blood cell count decreased [Recovered/Resolved]
  - Platelet count decreased [Unknown]
  - Diarrhoea [Unknown]
  - Decreased appetite [Not Recovered/Not Resolved]
  - Abdominal pain upper [Not Recovered/Not Resolved]
  - Disease progression [Unknown]
  - Malignant neoplasm progression [Unknown]
  - Hepatic failure [Not Recovered/Not Resolved]
  - Bone pain [Not Recovered/Not Resolved]
  - Pain in extremity [Unknown]

NARRATIVE: CASE EVENT DATE: 20200213
